FAERS Safety Report 18789411 (Version 1)
Quarter: 2021Q1

REPORT INFORMATION
  Report Type: Spontaneous
  Country: US (occurrence: US)
  Receive Date: 20210123
  Receipt Date: 20210123
  Transmission Date: 20210419
  Serious: No
  Sender: FDA-Public Use
  Company Number: None

PATIENT
  Sex: Female

DRUGS (1)
  1. CRESTOR [Suspect]
     Active Substance: ROSUVASTATIN CALCIUM

REACTIONS (55)
  - Feeling abnormal [None]
  - Dysgraphia [None]
  - Musculoskeletal chest pain [None]
  - Extrasystoles [None]
  - Cardiac failure congestive [None]
  - Therapy cessation [None]
  - Ocular hyperaemia [None]
  - Facial pain [None]
  - Asthenopia [None]
  - Muscle strain [None]
  - Nervous system disorder [None]
  - Slow speech [None]
  - Joint injury [None]
  - Eye pain [None]
  - Depression [None]
  - Chromaturia [None]
  - Vision blurred [None]
  - Regurgitation [None]
  - Solar lentigo [None]
  - Contraindicated product administered [None]
  - Limb injury [None]
  - Multiple fractures [None]
  - Pollakiuria [None]
  - Confusional state [None]
  - Madarosis [None]
  - Skull fracture [None]
  - Back pain [None]
  - Aphasia [None]
  - Eructation [None]
  - Dyspepsia [None]
  - Hiccups [None]
  - General symptom [None]
  - Headache [None]
  - Abdominal distension [None]
  - Hepatic pain [None]
  - Hyperthyroidism [None]
  - Heart rate irregular [None]
  - Abdominal pain upper [None]
  - Muscular weakness [None]
  - Thyroiditis [None]
  - Flatulence [None]
  - Stupor [None]
  - Aortic valve incompetence [None]
  - Osteoporosis [None]
  - Ligament injury [None]
  - Hepatic encephalopathy [None]
  - Cognitive disorder [None]
  - Eye disorder [None]
  - Chest discomfort [None]
  - Pain in extremity [None]
  - Rash [None]
  - Amnesia [None]
  - Fall [None]
  - Oral pain [None]
  - Mitral valve incompetence [None]
